FAERS Safety Report 6307122-9 (Version None)
Quarter: 2009Q3

REPORT INFORMATION
  Report Type: 
  Country: None (occurrence: None)
  Receive Date: 20090812
  Receipt Date: 20090810
  Transmission Date: 20100115
  Serious: Yes (Life-Threatening, Hospitalization, Other)
  Sender: FDA-Public Use
  Company Number: ES-GILEAD-E2B_00000411

PATIENT
  Age: 53 Year
  Sex: Female

DRUGS (8)
  1. TRUVADA [Suspect]
     Indication: HIV INFECTION
     Route: 048
     Dates: start: 20060515, end: 20090521
  2. METFORMIN HCL [Interacting]
     Indication: TYPE 2 DIABETES MELLITUS
     Route: 048
     Dates: start: 20051201, end: 20090521
  3. ATAZANAVIR [Concomitant]
  4. RITONAVIR [Concomitant]
  5. PRAVASTATIN [Concomitant]
  6. FAMOTIDINE [Concomitant]
  7. INDAPAMIDE [Concomitant]
  8. LYRICA [Concomitant]

REACTIONS (5)
  - CARDIO-RESPIRATORY ARREST [None]
  - DRUG INTERACTION [None]
  - FANCONI SYNDROME ACQUIRED [None]
  - METABOLIC ACIDOSIS [None]
  - RENAL FAILURE ACUTE [None]
